FAERS Safety Report 24034953 (Version 1)
Quarter: 2024Q3

REPORT INFORMATION
  Report Type: Spontaneous
  Country: IT (occurrence: IT)
  Receive Date: 20240701
  Receipt Date: 20240701
  Transmission Date: 20241016
  Serious: Yes (Other)
  Sender: MYLAN
  Company Number: IT-MYLANLABS-2024M1060012

PATIENT
  Age: 52 Year
  Sex: Male

DRUGS (2)
  1. VALACYCLOVIR [Suspect]
     Active Substance: VALACYCLOVIR HYDROCHLORIDE
     Indication: Herpes zoster oticus
     Dosage: 1 GRAM, TID; RECEIVED HIGH DOSE OF VALACICLOVIR THRICE A DAY FOR A WEEK
     Route: 065
  2. PREDNISOLONE [Suspect]
     Active Substance: PREDNISOLONE
     Indication: Herpes zoster oticus
     Dosage: 120 MILLIGRAM, INITIAL DOSE WAS TAPERED OVER 2-WEEKS
     Route: 065

REACTIONS (1)
  - Drug ineffective [Unknown]
